FAERS Safety Report 26152624 (Version 2)
Quarter: 2025Q4

REPORT INFORMATION
  Report Type: Spontaneous
  Country: US (occurrence: US)
  Receive Date: 20251214
  Receipt Date: 20251224
  Transmission Date: 20260118
  Serious: No
  Sender: SANOFI AVENTIS
  Company Number: US-SA-2025SA366740

PATIENT
  Age: 7 Year
  Sex: Male

DRUGS (2)
  1. DUPIXENT [Suspect]
     Active Substance: DUPILUMAB
     Indication: Eosinophilic oesophagitis
     Dosage: 200 MG, QOW
     Route: 058
  2. DUPIXENT [Suspect]
     Active Substance: DUPILUMAB
     Dosage: 200 MG, QOW
     Route: 058
     Dates: start: 202510

REACTIONS (7)
  - Decreased appetite [Unknown]
  - Pain in extremity [Unknown]
  - Condition aggravated [Unknown]
  - Skin irritation [Unknown]
  - Injection site swelling [Recovered/Resolved]
  - Injection site nerve damage [Unknown]
  - Product preparation error [Unknown]

NARRATIVE: CASE EVENT DATE: 20251101
